FAERS Safety Report 7475017-3 (Version None)
Quarter: 2011Q2

REPORT INFORMATION
  Report Type: 
  Country: None (occurrence: None)
  Receive Date: 20110509
  Receipt Date: 20110509
  Transmission Date: 20111010
  Serious: Yes (Life-Threatening, Hospitalization)
  Sender: FDA-Public Use
  Company Number: None

PATIENT
  Age: 69 Year
  Sex: Male
  Weight: 79.3795 kg

DRUGS (5)
  1. GABAPENTIN [Concomitant]
  2. NORCO [Concomitant]
  3. FLUCONAZOLE [Concomitant]
  4. PREDNISONE [Concomitant]
  5. PRADAXA [Suspect]
     Indication: ANTICOAGULANT THERAPY
     Dosage: 150MG BID PO
     Route: 048
     Dates: start: 20110404, end: 20110411

REACTIONS (4)
  - RECTAL HAEMORRHAGE [None]
  - HAEMORRHAGE [None]
  - CONTUSION [None]
  - EPISTAXIS [None]
